FAERS Safety Report 7985114-1 (Version None)
Quarter: 2011Q4

REPORT INFORMATION
  Report Type: 
  Country: None (occurrence: None)
  Receive Date: 20111216
  Receipt Date: 20111211
  Transmission Date: 20120403
  Serious: Yes (Death, Hospitalization, Other)
  Sender: FDA-Public Use
  Company Number: PHHY2011US108411

PATIENT
  Age: 67 Year
  Sex: Male

DRUGS (1)
  1. SANDOSTATIN [Suspect]
     Indication: CARCINOID TUMOUR
     Route: 065

REACTIONS (16)
  - BACK PAIN [None]
  - FAECAL INCONTINENCE [None]
  - WOUND INFECTION [None]
  - CARDIAC ENZYMES INCREASED [None]
  - METASTASES TO SPINE [None]
  - SPINAL COLUMN STENOSIS [None]
  - KLEBSIELLA INFECTION [None]
  - SPINAL FRACTURE [None]
  - DYSPNOEA [None]
  - URINARY INCONTINENCE [None]
  - HYPOACUSIS [None]
  - MUSCULAR WEAKNESS [None]
  - VIITH NERVE PARALYSIS [None]
  - PULMONARY OEDEMA [None]
  - NEOPLASM MALIGNANT [None]
  - TACHYCARDIA [None]
